FAERS Safety Report 9031652 (Version 1)
Quarter: 2013Q1

REPORT INFORMATION
  Report Type: Spontaneous
  Country: DE (occurrence: DE)
  Receive Date: 20130124
  Receipt Date: 20130124
  Transmission Date: 20140127
  Serious: Yes (Life-Threatening, Other)
  Sender: FDA-Public Use
  Company Number: DE-ELI_LILLY_AND_COMPANY-DE201301003192

PATIENT
  Age: 72 Year
  Sex: Female
  Weight: 75 kg

DRUGS (7)
  1. ALIMTA [Suspect]
     Indication: BRONCHIAL CARCINOMA
     Dosage: 500 MG, UNK
     Route: 042
  2. VITAMIN B12 [Concomitant]
  3. FOLIC ACID [Concomitant]
  4. DEXAMETHASON                       /00016001/ [Concomitant]
     Dosage: 4 MG, UNK
  5. CLOPIDOGREL [Concomitant]
  6. ASS [Concomitant]
  7. SORTIS [Concomitant]

REACTIONS (1)
  - Acute myeloid leukaemia [Unknown]
